FAERS Safety Report 5982541-9 (Version None)
Quarter: 2008Q4

REPORT INFORMATION
  Report Type: 
  Country: None (occurrence: None)
  Receive Date: 20081208
  Receipt Date: 20081125
  Transmission Date: 20090506
  Serious: Yes (Other)
  Sender: FDA-Public Use
  Company Number: PHBS2008US06584

PATIENT
  Age: 73 Year
  Sex: Female

DRUGS (2)
  1. ZOMETA [Suspect]
     Indication: BREAST CANCER METASTATIC
     Dosage: 0.5 MG
  2. AREDIA [Suspect]
     Indication: BREAST CANCER METASTATIC

REACTIONS (3)
  - BONE DISORDER [None]
  - IMPAIRED HEALING [None]
  - PAIN [None]
